FAERS Safety Report 12374434 (Version 1)
Quarter: 2016Q2

REPORT INFORMATION
  Report Type: Spontaneous
  Country: US (occurrence: None)
  Receive Date: 20160516
  Receipt Date: 20160516
  Transmission Date: 20160815
  Serious: Yes (Disabling, Other)
  Sender: FDA-Public Use
  Company Number: None

PATIENT
  Age: 51 Year
  Sex: Female
  Weight: 74.84 kg

DRUGS (6)
  1. NEXIUM [Suspect]
     Active Substance: ESOMEPRAZOLE MAGNESIUM
     Indication: GASTROOESOPHAGEAL REFLUX DISEASE
  2. CELEBREX [Concomitant]
     Active Substance: CELECOXIB
  3. TUMS [Concomitant]
     Active Substance: CALCIUM CARBONATE
  4. CLARITIN [Concomitant]
     Active Substance: LORATADINE
  5. NEXIUM [Suspect]
     Active Substance: ESOMEPRAZOLE MAGNESIUM
     Indication: HIATUS HERNIA
  6. LISINOPRIL. [Concomitant]
     Active Substance: LISINOPRIL

REACTIONS (4)
  - Abdominal pain upper [None]
  - Gastric polyps [None]
  - Gastrooesophageal reflux disease [None]
  - Hiatus hernia [None]

NARRATIVE: CASE EVENT DATE: 20160228
